FAERS Safety Report 10259295 (Version 2)
Quarter: 2014Q2

REPORT INFORMATION
  Report Type: Report from Study
  Country: CA (occurrence: CA)
  Receive Date: 20140625
  Receipt Date: 20140625
  Transmission Date: 20141212
  Serious: Yes (Other)
  Sender: FDA-Public Use
  Company Number: CA-BAYER-2014-078471

PATIENT
  Age: 59 Year
  Sex: Male

DRUGS (4)
  1. STIVARGA [Suspect]
     Indication: COLORECTAL CANCER METASTATIC
     Dosage: 160 MG, QD
     Route: 048
     Dates: start: 20140514
  2. COLACE [Concomitant]
     Dosage: 1 DF, BID
  3. MULTIVITAMIN [Concomitant]
     Dosage: AS DIRECTED
  4. TYLENOL ES [Concomitant]
     Dosage: UNK UNK, PRN

REACTIONS (7)
  - Hypersensitivity [Unknown]
  - Pruritus generalised [Unknown]
  - Erythema [None]
  - Jaundice [None]
  - Fatigue [None]
  - Abdominal pain [None]
  - Constipation [None]
